FAERS Safety Report 24794891 (Version 1)
Quarter: 2024Q4

REPORT INFORMATION
  Report Type: Spontaneous
  Country: CA (occurrence: CA)
  Receive Date: 20241231
  Receipt Date: 20241231
  Transmission Date: 20250114
  Serious: Yes (Hospitalization, Other)
  Sender: PURDUE
  Company Number: CA-PURDUE-USA-2024-0314311

PATIENT
  Age: 32 Year
  Sex: Male

DRUGS (1)
  1. DEXTROAMPHETAMINE SACCHARATE, AMPHETAMINE ASPARTATE, DEXTROAMPHETAMINE [Suspect]
     Active Substance: AMPHETAMINE ASPARTATE\AMPHETAMINE SULFATE\DEXTROAMPHETAMINE SACCHARATE\DEXTROAMPHETAMINE SULFATE
     Indication: Product used for unknown indication
     Dosage: 5-8 AMPHETAMINE TABLETS DAILY
     Route: 048

REACTIONS (5)
  - Dilated cardiomyopathy [Recovered/Resolved]
  - Toxic cardiomyopathy [Recovered/Resolved]
  - Cardiac failure [Recovered/Resolved]
  - Cardiogenic shock [Recovered/Resolved]
  - Substance abuse [Unknown]
